FAERS Safety Report 25233283 (Version 1)
Quarter: 2025Q2

REPORT INFORMATION
  Report Type: Spontaneous
  Country: PL (occurrence: PL)
  Receive Date: 20250424
  Receipt Date: 20250424
  Transmission Date: 20250716
  Serious: Yes (Life-Threatening, Hospitalization, Other)
  Sender: SANOFI AVENTIS
  Company Number: None

PATIENT
  Age: 72 Year
  Sex: Female
  Weight: 80 kg

DRUGS (1)
  1. ENOXAPARIN SODIUM [Suspect]
     Active Substance: ENOXAPARIN SODIUM
     Indication: Coagulopathy
     Route: 058

REACTIONS (5)
  - Intra-abdominal fluid collection [Recovering/Resolving]
  - Effusion [Recovering/Resolving]
  - Gastrointestinal necrosis [Recovering/Resolving]
  - Haemorrhagic ascites [Recovering/Resolving]
  - Retroperitoneal haematoma [Recovering/Resolving]

NARRATIVE: CASE EVENT DATE: 20200109
